FAERS Safety Report 6027001-4 (Version None)
Quarter: 2009Q1

REPORT INFORMATION
  Report Type: 
  Country: None (occurrence: None)
  Receive Date: 20090105
  Receipt Date: 20081230
  Transmission Date: 20090719
  Serious: Yes (Death, Other)
  Sender: FDA-Public Use
  Company Number: PHBS2008JP06724

PATIENT
  Age: 64 Year
  Sex: Female
  Weight: 48.5 kg

DRUGS (7)
  1. CYCLOSPORINE [Suspect]
     Indication: DERMATOMYOSITIS
     Dosage: 150 MG/DAY
     Route: 048
  2. CYCLOSPORINE [Suspect]
     Indication: INTERSTITIAL LUNG DISEASE
  3. METHYLPREDNISOLONE 16MG TAB [Suspect]
     Dosage: 1000 MG/DAY
     Route: 042
  4. PREDNISONE TAB [Suspect]
     Dosage: 50 MG/DAY
     Route: 048
  5. CYCLOPHOSPHAMIDE [Suspect]
     Dosage: 500 MG, BIW
  6. DALTEPARIN SODIUM [Suspect]
     Dosage: 75 IU/KG/DAY
  7. RED BLOOD CELLS [Concomitant]
     Dosage: 3 IU

REACTIONS (9)
  - ABDOMINAL PAIN LOWER [None]
  - ANEURYSM [None]
  - HAEMOGLOBIN DECREASED [None]
  - INTRA-ABDOMINAL HAEMATOMA [None]
  - MULTI-ORGAN FAILURE [None]
  - MUSCLE HAEMORRHAGE [None]
  - MYOSITIS [None]
  - THERAPEUTIC EMBOLISATION [None]
  - THROMBOTIC THROMBOCYTOPENIC PURPURA [None]
